FAERS Safety Report 4619194-8 (Version None)
Quarter: 2005Q1

REPORT INFORMATION
  Report Type: 
  Country: None (occurrence: None)
  Receive Date: 20050325
  Receipt Date: 20050315
  Transmission Date: 20050727
  Serious: Yes (Other)
  Sender: FDA-Public Use
  Company Number: JP-ABBOTT-05P-087-0294511-00

PATIENT
  Sex: Female
  Weight: 59 kg

DRUGS (12)
  1. HUMIRA [Suspect]
     Indication: RHEUMATOID ARTHRITIS
     Route: 058
     Dates: start: 20040109, end: 20050218
  2. AURANOFIN [Concomitant]
     Indication: RHEUMATOID ARTHRITIS
     Route: 048
     Dates: start: 20021016, end: 20030101
  3. AURANOFIN [Concomitant]
     Route: 048
     Dates: start: 20030418, end: 20030501
  4. REBAMIPIDE [Concomitant]
     Indication: PROPHYLAXIS AGAINST GASTROINTESTINAL ULCER
     Route: 048
     Dates: start: 20030502
  5. CALCITRIOL [Concomitant]
     Indication: OSTEOPOROSIS PROPHYLAXIS
     Route: 048
     Dates: start: 20031025
  6. TERBINAFINE HCL [Concomitant]
     Indication: NAIL TINEA
     Route: 048
     Dates: start: 20030829, end: 20031205
  7. TERBINAFINE HCL [Concomitant]
     Route: 061
     Dates: start: 20030627, end: 20030828
  8. BETAHISTINE HYDROCHLORIDE [Concomitant]
     Indication: DIZZINESS
     Route: 048
     Dates: start: 20041014, end: 20041014
  9. ZALTOPROFEN [Concomitant]
     Indication: RHEUMATOID ARTHRITIS
     Route: 048
     Dates: start: 20030502
  10. PREDNISOLONE [Concomitant]
     Indication: RHEUMATOID ARTHRITIS
     Route: 048
     Dates: start: 20021016, end: 20030501
  11. PREDNISOLONE [Concomitant]
     Route: 048
     Dates: start: 20030521, end: 20040630
  12. PREDNISOLONE [Concomitant]
     Route: 048
     Dates: start: 20040731

REACTIONS (3)
  - EXOPHTHALMOS [None]
  - EYELID OEDEMA [None]
  - NEOPLASM OF ORBIT [None]
